FAERS Safety Report 4656717-7 (Version None)
Quarter: 2005Q2

REPORT INFORMATION
  Report Type: 
  Country: None (occurrence: None)
  Receive Date: 20050506
  Receipt Date: 20050427
  Transmission Date: 20051028
  Serious: No
  Sender: FDA-Public Use
  Company Number: CIP05000346

PATIENT
  Age: 64 Year
  Sex: Female

DRUGS (2)
  1. ACTONEL [Suspect]
     Indication: OSTEOPOROSIS
     Dosage: 35 MG ONCE WEEKLY, ORAL
     Route: 048
     Dates: start: 20050203, end: 20050208
  2. CALTRATE (CALCIUM CARBONATE) [Concomitant]

REACTIONS (2)
  - GENERALISED OEDEMA [None]
  - SWELLING FACE [None]
